FAERS Safety Report 11467662 (Version 1)
Quarter: 2015Q3

REPORT INFORMATION
  Report Type: Report from Study
  Country: BR (occurrence: BR)
  Receive Date: 20150908
  Receipt Date: 20150908
  Transmission Date: 20151125
  Serious: Yes (Hospitalization, Other)
  Sender: FDA-Public Use
  Company Number: PHHY2015BR106748

PATIENT
  Sex: Male
  Weight: 69 kg

DRUGS (3)
  1. ONBREZ BREEZHALER [Suspect]
     Active Substance: INDACATEROL
     Indication: LUNG DISORDER
     Dosage: 1 DF, BID (IN THE MORNING AND 1 AT NIGHT)
     Route: 065
  2. DIOVAN [Suspect]
     Active Substance: VALSARTAN
     Indication: HYPERTENSION
     Dosage: UNK
     Route: 065
  3. ONBREZ BREEZHALER [Suspect]
     Active Substance: INDACATEROL
     Dosage: 1 DF, QD IN THE MORNING
     Route: 065

REACTIONS (4)
  - Acne [Recovering/Resolving]
  - Colorectal cancer [Unknown]
  - Increased bronchial secretion [Recovering/Resolving]
  - Skin sensitisation [Recovering/Resolving]

NARRATIVE: CASE EVENT DATE: 2011
